FAERS Safety Report 11287257 (Version 1)
Quarter: 2015Q3

REPORT INFORMATION
  Report Type: Spontaneous
  Country: US (occurrence: None)
  Receive Date: 20150720
  Receipt Date: 20150720
  Transmission Date: 20151125
  Serious: Yes (Other)
  Sender: FDA-Public Use
  Company Number: None

PATIENT
  Age: 10 Year
  Sex: Female
  Weight: 26.31 kg

DRUGS (1)
  1. PYRETHIN AND PIPERONYL BUTOXIDE RITE AID BRAND [Suspect]
     Active Substance: PIPERONYL BUTOXIDE\PYRETHRUM EXTRACT
     Indication: LICE INFESTATION
     Dates: start: 20150710

REACTIONS (2)
  - Rash pustular [None]
  - Skin disorder [None]

NARRATIVE: CASE EVENT DATE: 20150710
